FAERS Safety Report 16399176 (Version 2)
Quarter: 2019Q3

REPORT INFORMATION
  Report Type: Spontaneous
  Country: US (occurrence: US)
  Receive Date: 20190606
  Receipt Date: 20190912
  Transmission Date: 20191004
  Serious: Yes (Other)
  Sender: FDA-Public Use
  Company Number: US-SA-2019SA153759

PATIENT
  Age: 59 Year
  Sex: Female

DRUGS (1)
  1. KEVZARA [Suspect]
     Active Substance: SARILUMAB
     Indication: RHEUMATOID ARTHRITIS
     Dosage: 200 MG, QOW
     Route: 058
     Dates: start: 20170928

REACTIONS (4)
  - Rheumatoid arthritis [Unknown]
  - Headache [Unknown]
  - Blister [Unknown]
  - Rheumatoid nodule [Unknown]

NARRATIVE: CASE EVENT DATE: 20190530
